FAERS Safety Report 6919114-7 (Version None)
Quarter: 2010Q3

REPORT INFORMATION
  Report Type: 
  Country: None (occurrence: None)
  Receive Date: 20100811
  Receipt Date: 20100730
  Transmission Date: 20110219
  Serious: Yes (Hospitalization)
  Sender: FDA-Public Use
  Company Number: JP-ROCHE-706941

PATIENT
  Sex: Male

DRUGS (3)
  1. CAPECITABINE [Suspect]
     Indication: GASTRIC CANCER
     Dosage: TAKEN ON DAYS 1-14 EVERY 21 DAYS
     Route: 048
     Dates: start: 20100413
  2. AXITINIB [Suspect]
     Indication: GASTRIC CANCER
     Route: 048
     Dates: start: 20100410
  3. CISPLATIN [Suspect]
     Indication: GASTRIC CANCER
     Dosage: TAKEN ON DAY ONE
     Route: 042
     Dates: start: 20100413

REACTIONS (1)
  - GASTROINTESTINAL PERFORATION [None]
